FAERS Safety Report 12956977 (Version 3)
Quarter: 2017Q2

REPORT INFORMATION
  Report Type: Spontaneous
  Country: DE (occurrence: DE)
  Receive Date: 20161118
  Receipt Date: 20170403
  Transmission Date: 20170830
  Serious: Yes (Death, Congenital Anomaly, Other)
  Sender: FDA-Public Use
  Company Number: DE-ABBVIE-16K-062-1784891-00

PATIENT
  Sex: Male

DRUGS (2)
  1. HUMIRA [Suspect]
     Active Substance: ADALIMUMAB
     Indication: MATERNAL EXPOSURE TIMING UNSPECIFIED
     Route: 064
  2. FOLIO [Suspect]
     Active Substance: FOLIC ACID
     Indication: MATERNAL EXPOSURE TIMING UNSPECIFIED
     Route: 064

REACTIONS (10)
  - Foetal exposure during pregnancy [Unknown]
  - Pulmonary haemorrhage [Not Recovered/Not Resolved]
  - Foetal hypokinesia [Unknown]
  - Premature baby [Unknown]
  - Caesarean section [Unknown]
  - Congenital anaemia [Not Recovered/Not Resolved]
  - Haemothorax [Unknown]
  - Bradycardia foetal [Unknown]
  - Congenital coagulopathy [Not Recovered/Not Resolved]
  - Neonatal cardiac failure [Fatal]

NARRATIVE: CASE EVENT DATE: 201609
